FAERS Safety Report 4277404-3 (Version None)
Quarter: 2004Q1

REPORT INFORMATION
  Report Type: 
  Country: None (occurrence: None)
  Receive Date: 20040122
  Receipt Date: 20040112
  Transmission Date: 20041129
  Serious: Yes (Other)
  Sender: FDA-Public Use
  Company Number: US-GLAXOSMITHKLINE-A0493132A

PATIENT
  Age: 62 Year
  Sex: Female

DRUGS (1)
  1. LAMICTAL [Suspect]
     Indication: CONVULSION
     Dosage: 50MG TWICE PER DAY
     Route: 048
     Dates: start: 20030501

REACTIONS (3)
  - CONVULSION [None]
  - MASKED FACIES [None]
  - MUSCLE RIGIDITY [None]
